FAERS Safety Report 6184590-7 (Version None)
Quarter: 2009Q2

REPORT INFORMATION
  Report Type: 
  Country: None (occurrence: None)
  Receive Date: 20090508
  Receipt Date: 20090429
  Transmission Date: 20091009
  Serious: Yes (Other)
  Sender: FDA-Public Use
  Company Number: PHEH2009US04275

PATIENT
  Sex: Female

DRUGS (2)
  1. FEMARA [Suspect]
     Dosage: UNK
  2. VITAMIN D [Concomitant]
     Dosage: 5000 UNITS, UNK

REACTIONS (3)
  - FALL [None]
  - HAND FRACTURE [None]
  - UPPER LIMB FRACTURE [None]
